FAERS Safety Report 23948624 (Version 1)
Quarter: 2024Q2

REPORT INFORMATION
  Report Type: Spontaneous
  Country: US (occurrence: US)
  Receive Date: 20240607
  Receipt Date: 20240607
  Transmission Date: 20240715
  Serious: Yes (Hospitalization)
  Sender: FDA-Public Use
  Company Number: US-SA-SAC20240604000673

PATIENT
  Age: 46 Year
  Sex: Female

DRUGS (1)
  1. REZUROCK [Suspect]
     Active Substance: BELUMOSUDIL
     Indication: Chronic graft versus host disease
     Dosage: 200 MG, QD
     Route: 048
     Dates: start: 20240503

REACTIONS (8)
  - Appendix disorder [Unknown]
  - Pain [Unknown]
  - Stomatitis [Unknown]
  - Oral mucosal blistering [Unknown]
  - Dry eye [Unknown]
  - Insomnia [Unknown]
  - Chills [Unknown]
  - Muscle spasms [Unknown]
